FAERS Safety Report 12717042 (Version 1)
Quarter: 2016Q3

REPORT INFORMATION
  Report Type: Spontaneous
  Country: US (occurrence: US)
  Receive Date: 20160906
  Receipt Date: 20160906
  Transmission Date: 20161109
  Serious: Yes (Other)
  Sender: FDA-Public Use
  Company Number: None

PATIENT
  Age: 62 Year
  Sex: Male
  Weight: 66.6 kg

DRUGS (9)
  1. BENEFIBER [Concomitant]
     Active Substance: STARCH, WHEAT
  2. RESTASIS [Concomitant]
     Active Substance: CYCLOSPORINE
  3. PROBIOTICS [Concomitant]
     Active Substance: PROBIOTICS NOS
  4. CLINDAMYCIN [Suspect]
     Active Substance: CLINDAMYCIN\CLINDAMYCIN PHOSPHATE
     Indication: POST PROCEDURAL INFECTION
     Route: 048
     Dates: start: 20160526, end: 20160603
  5. MULTIVITAMINS [Concomitant]
     Active Substance: VITAMINS
  6. VITAMIN C [Concomitant]
     Active Substance: ASCORBIC ACID
  7. FISH OIL [Concomitant]
     Active Substance: FISH OIL
  8. VITAMIN B12 [Concomitant]
     Active Substance: CYANOCOBALAMIN
  9. TYLENOL [Concomitant]
     Active Substance: ACETAMINOPHEN

REACTIONS (3)
  - Clostridium difficile colitis [None]
  - Weight decreased [None]
  - Fear [None]

NARRATIVE: CASE EVENT DATE: 20160526
